FAERS Safety Report 15169215 (Version 1)
Quarter: 2018Q3

REPORT INFORMATION
  Report Type: Spontaneous
  Country: IT (occurrence: IT)
  Receive Date: 20180720
  Receipt Date: 20180720
  Transmission Date: 20181010
  Serious: Yes (Other)
  Sender: FDA-Public Use
  Company Number: IT-TEVA-2018-IT-928648

PATIENT
  Age: 60 Year
  Sex: Male

DRUGS (7)
  1. TACNI CAPSULE RIGIDE DA 0,5 MG [Suspect]
     Active Substance: TACROLIMUS
     Route: 065
  2. ZYLORIC 300 MG COMPRESSE [Concomitant]
     Active Substance: ALLOPURINOL
  3. LANSOX [Concomitant]
     Active Substance: LANSOPRAZOLE
  4. URBASON 4 MG COMPRESSE [Concomitant]
     Active Substance: METHYLPREDNISOLONE
  5. ATORVASTATIN [Suspect]
     Active Substance: ATORVASTATIN
     Dosage: 40 MILLIGRAM DAILY;
     Route: 065
  6. TACNI CAPSULE RIGIDE DA 1 MG [Suspect]
     Active Substance: TACROLIMUS
     Route: 065
  7. METOPROLOLO [Concomitant]

REACTIONS (1)
  - Chest discomfort [Recovering/Resolving]

NARRATIVE: CASE EVENT DATE: 20180527
